FAERS Safety Report 24769051 (Version 1)
Quarter: 2024Q4

REPORT INFORMATION
  Report Type: Other
  Country: AU (occurrence: AU)
  Receive Date: 20241224
  Receipt Date: 20241224
  Transmission Date: 20250114
  Serious: Yes (Other)
  Sender: ALEMBIC
  Company Number: AU-ALEMBIC PHARMACUETICALS LIMITED-2024SCAL001835

PATIENT

DRUGS (1)
  1. DULOXETINE HYDROCHLORIDE [Suspect]
     Active Substance: DULOXETINE HYDROCHLORIDE
     Indication: Product used for unknown indication
     Dosage: UNK

REACTIONS (6)
  - Drug dependence [Unknown]
  - Ejaculation failure [Unknown]
  - Disturbance in attention [Unknown]
  - Feeling abnormal [Unknown]
  - Sexual dysfunction [Unknown]
  - Somnolence [Unknown]
